FAERS Safety Report 9922235 (Version 4)
Quarter: 2014Q2

REPORT INFORMATION
  Report Type: Report from Study
  Country: IL (occurrence: IL)
  Receive Date: 20140225
  Receipt Date: 20140519
  Transmission Date: 20141212
  Serious: Yes (Hospitalization)
  Sender: FDA-Public Use
  Company Number: IL-BAYER-2012-130654

PATIENT
  Age: 76 Year
  Sex: Male
  Weight: 80 kg

DRUGS (28)
  1. REGORAFENIB [Suspect]
     Indication: COLON CANCER METASTATIC
     Dosage: 160 MG DAILY
     Route: 048
     Dates: start: 20120913, end: 20120913
  2. REGORAFENIB [Suspect]
     Indication: COLON CANCER METASTATIC
     Dosage: 160 MG DAILY
     Route: 048
     Dates: start: 20120913, end: 20121011
  3. REGORAFENIB [Suspect]
     Indication: COLON CANCER METASTATIC
     Dosage: 160 MG DAILY
     Route: 048
     Dates: start: 20120913, end: 20121011
  4. REGORAFENIB [Suspect]
     Indication: COLON CANCER METASTATIC
     Dosage: 160 MG DAILY
     Route: 048
     Dates: start: 20121011, end: 20121108
  5. REGORAFENIB [Suspect]
     Indication: COLON CANCER METASTATIC
     Dosage: 160 MG DAILY
     Route: 048
     Dates: start: 20121011, end: 20121108
  6. REGORAFENIB [Suspect]
     Indication: COLON CANCER METASTATIC
     Dosage: 160 MG DAILY
     Route: 048
     Dates: start: 20121011, end: 20121108
  7. REGORAFENIB [Suspect]
     Indication: COLON CANCER METASTATIC
     Dosage: 160 MG DAILY
     Route: 048
     Dates: start: 20121108, end: 20121206
  8. REGORAFENIB [Suspect]
     Indication: COLON CANCER METASTATIC
     Dosage: 160 MG DAILY
     Route: 048
     Dates: start: 20121108, end: 20121206
  9. REGORAFENIB [Suspect]
     Indication: COLON CANCER METASTATIC
     Dosage: 160 MG DAILY
     Route: 048
     Dates: start: 20121108, end: 20121206
  10. REGORAFENIB [Suspect]
     Indication: COLON CANCER METASTATIC
     Dosage: 160 MG DAILY
     Route: 048
     Dates: start: 20121206, end: 20121211
  11. REGORAFENIB [Suspect]
     Indication: COLON CANCER METASTATIC
     Dosage: 80 MG DAILY
     Route: 048
     Dates: start: 20121214, end: 20121228
  12. REGORAFENIB [Suspect]
     Indication: COLON CANCER METASTATIC
     Dosage: 120 MG DAILY
     Route: 048
     Dates: start: 20130107, end: 20130126
  13. REGORAFENIB [Suspect]
     Indication: COLON CANCER METASTATIC
     Dosage: 160 MG
     Route: 048
     Dates: start: 20120913, end: 20121211
  14. ASPIRIN BUFFERED [Concomitant]
     Dosage: 325 MG, UNK
     Route: 048
  15. ELTROXIN [Concomitant]
     Dosage: 0.05 MG, UNK
     Route: 048
  16. URGENIN [Concomitant]
     Route: 048
  17. DUROGESIC [Concomitant]
     Dosage: 0.075 MG, UNK
  18. DUROGESIC [Concomitant]
     Dosage: 100 ?G, UNK
  19. OXYCODONE [Concomitant]
     Dosage: UNK
  20. PERCOCET [Concomitant]
     Dosage: UNK
     Dates: start: 20121210
  21. LACRIMOL [Concomitant]
     Indication: PROPHYLAXIS
     Dosage: 1 GTT, BOTH EYES
     Dates: start: 20110913
  22. TAMSULOSIN [Concomitant]
     Indication: BENIGN PROSTATIC HYPERPLASIA
     Dosage: 0.4 MG DAILY
     Route: 048
     Dates: start: 20101013
  23. XATRAL [Concomitant]
     Indication: BENIGN PROSTATIC HYPERPLASIA
     Dosage: 10 MG DAILY
     Route: 048
     Dates: start: 20090726
  24. BONDORMIN [Concomitant]
  25. TAMSULOSIN HYDROCHLORIDE [Concomitant]
     Indication: BENIGN PROSTATIC HYPERPLASIA
     Dosage: 0.4 MG DAILY
     Route: 048
     Dates: start: 20090814
  26. PENTA PATCH [Concomitant]
     Indication: PAIN
     Dosage: 100 MG
     Route: 061
     Dates: start: 20100918
  27. BERITEX [Concomitant]
     Indication: VITAMIN SUPPLEMENTATION
     Dosage: TSB QD
     Route: 048
     Dates: start: 20070108
  28. TEARS NATURALE [Concomitant]
     Indication: DRY EYE
     Dosage: 1- 2 DROPS
     Dates: start: 20041221

REACTIONS (2)
  - Diarrhoea [Recovered/Resolved]
  - Renal failure acute [Recovered/Resolved]
